FAERS Safety Report 9209483 (Version 2)
Quarter: 2013Q2

REPORT INFORMATION
  Report Type: Spontaneous
  Country: US (occurrence: US)
  Receive Date: 20130404
  Receipt Date: 20130520
  Transmission Date: 20140414
  Serious: Yes (Other)
  Sender: FDA-Public Use
  Company Number: US-BAYER-2013-041054

PATIENT
  Age: 22 Year
  Sex: Female

DRUGS (1)
  1. MIRENA [Suspect]
     Indication: CONTRACEPTION
     Dosage: 20 MCG/24HR, CONT
     Route: 015
     Dates: start: 20130319, end: 20130323

REACTIONS (9)
  - Dysuria [Recovered/Resolved]
  - Urinary tract infection [Recovered/Resolved]
  - Feeling abnormal [Recovered/Resolved]
  - Pyrexia [Recovered/Resolved]
  - Micturition urgency [Recovered/Resolved]
  - Hypersensitivity [Recovered/Resolved]
  - Genital swelling [Recovered/Resolved]
  - Vulvovaginal swelling [Recovered/Resolved]
  - Vulvovaginal pain [Recovered/Resolved]
